FAERS Safety Report 18277922 (Version 4)
Quarter: 2020Q4

REPORT INFORMATION
  Report Type: Spontaneous
  Country: DE (occurrence: DE)
  Receive Date: 20200917
  Receipt Date: 20201023
  Transmission Date: 20210113
  Serious: No
  Sender: FDA-Public Use
  Company Number: DE-GW PHARMA-202009DEGW03091

PATIENT

DRUGS (8)
  1. LAMOTRIGINE. [Interacting]
     Active Substance: LAMOTRIGINE
     Dosage: UNK (REDUCED DOSE, TILL 04-SEP-2020)
     Route: 065
     Dates: start: 20200803
  2. OXCARBAZEPIN [Interacting]
     Active Substance: OXCARBAZEPINE
     Indication: PRODUCT USED FOR UNKNOWN INDICATION
     Dosage: UNK
     Route: 065
     Dates: end: 2020
  3. OXCARBAZEPIN [Interacting]
     Active Substance: OXCARBAZEPINE
     Dosage: DOSE INCREASED
     Route: 065
     Dates: start: 2020, end: 20200701
  4. EPIDIOLEX [Suspect]
     Active Substance: CANNABIDIOL
     Indication: TUBEROUS SCLEROSIS COMPLEX
     Dosage: 15 MG/KG, 120 MILLIGRAM, BID
     Route: 048
     Dates: start: 202006
  5. LAMOTRIGINE. [Interacting]
     Active Substance: LAMOTRIGINE
     Indication: PRODUCT USED FOR UNKNOWN INDICATION
     Dosage: UNK
     Route: 065
     Dates: end: 2020
  6. EVEROLIMUS. [Concomitant]
     Active Substance: EVEROLIMUS
     Indication: PRODUCT USED FOR UNKNOWN INDICATION
     Dosage: UNK
     Route: 065
  7. LAMOTRIGINE. [Interacting]
     Active Substance: LAMOTRIGINE
     Dosage: DOSE INCREASED
     Route: 065
     Dates: start: 2020, end: 20200802
  8. OXCARBAZEPIN [Interacting]
     Active Substance: OXCARBAZEPINE
     Dosage: UNK (DOSE DECREASED TILL 04-SEP-2020, WILL BE WEANED OFF)
     Route: 065
     Dates: start: 20200702

REACTIONS (5)
  - Anticonvulsant drug level decreased [Recovered/Resolved]
  - Anticonvulsant drug level decreased [Recovered/Resolved]
  - Drug interaction [Unknown]
  - Product use in unapproved indication [Unknown]
  - Seizure [Recovering/Resolving]

NARRATIVE: CASE EVENT DATE: 2020
